FAERS Safety Report 14570089 (Version 1)
Quarter: 2018Q1

REPORT INFORMATION
  Report Type: Spontaneous
  Country: US (occurrence: US)
  Receive Date: 20180225
  Receipt Date: 20180225
  Transmission Date: 20180509
  Serious: No
  Sender: FDA-Public Use
  Company Number: US-009507513-1802USA009620

PATIENT
  Age: 40 Year
  Sex: Female
  Weight: 62.13 kg

DRUGS (2)
  1. NEXPLANON [Suspect]
     Active Substance: ETONOGESTREL
     Indication: CONTRACEPTION
     Dosage: 1 DF, EVERY 3 YEARS INSERTED IN LEFT ARM
     Route: 059
     Dates: start: 20150210
  2. HYDROCHLOROTHIAZIDE. [Concomitant]
     Active Substance: HYDROCHLOROTHIAZIDE

REACTIONS (6)
  - Vaginal discharge [Unknown]
  - Expired product administered [Unknown]
  - Incorrect drug administration duration [Unknown]
  - Depression [Unknown]
  - Muscle spasms [Unknown]
  - Mood swings [Unknown]
